FAERS Safety Report 4620789-6 (Version None)
Quarter: 2005Q1

REPORT INFORMATION
  Report Type: 
  Country: None (occurrence: None)
  Receive Date: 20050325
  Receipt Date: 20050310
  Transmission Date: 20050727
  Serious: Yes (Hospitalization)
  Sender: FDA-Public Use
  Company Number: 2005BI000576

PATIENT
  Age: 26 Year
  Sex: Female

DRUGS (6)
  1. AVONEX [Suspect]
     Indication: MULTIPLE SCLEROSIS
     Dosage: 30 UG; QW; IM
     Route: 030
     Dates: start: 20030701, end: 20050209
  2. ZOLOFT [Concomitant]
  3. SYNTHROID [Concomitant]
  4. DITROPAN [Concomitant]
  5. DESOGEN [Concomitant]
  6. MULTI-VITAMIN [Concomitant]

REACTIONS (3)
  - CHOLECYSTITIS [None]
  - CHOLELITHIASIS [None]
  - WEIGHT DECREASED [None]
